FAERS Safety Report 8577406-2 (Version None)
Quarter: 2012Q3

REPORT INFORMATION
  Report Type: 
  Country: None (occurrence: None)
  Receive Date: 20120807
  Receipt Date: 20120802
  Transmission Date: 20120928
  Serious: Yes (Death, Hospitalization)
  Sender: FDA-Public Use
  Company Number: US-CELGENEUS-163-21880-12071948

PATIENT
  Sex: Male
  Weight: 67.1 kg

DRUGS (3)
  1. MEGACE [Concomitant]
     Route: 048
  2. REVLIMID [Suspect]
     Dosage: 20 MILLIGRAM
     Route: 048
     Dates: start: 20120619
  3. ZYRTEC [Concomitant]
     Dosage: 10 MILLIGRAM
     Route: 065

REACTIONS (3)
  - DISEASE PROGRESSION [None]
  - DRUG INEFFECTIVE [None]
  - FAILURE TO THRIVE [None]
